FAERS Safety Report 7146308-0 (Version None)
Quarter: 2010Q4

REPORT INFORMATION
  Report Type: 
  Country: None (occurrence: None)
  Receive Date: 20101208
  Receipt Date: 20101130
  Transmission Date: 20110411
  Serious: Yes (Death)
  Sender: FDA-Public Use
  Company Number: DE-BAXTER-2010BH028111

PATIENT
  Age: 58 Year
  Sex: Male

DRUGS (6)
  1. EXTRANEAL [Suspect]
     Indication: PERITONEAL DIALYSIS
     Route: 033
     Dates: start: 20100801, end: 20101102
  2. EXTRANEAL [Suspect]
     Route: 033
     Dates: start: 20100801, end: 20101102
  3. EXTRANEAL [Suspect]
     Indication: CARDIORENAL SYNDROME
     Route: 033
     Dates: start: 20100801, end: 20101102
  4. PHYSIOSOL IN PLASTIC CONTAINER [Suspect]
     Indication: PERITONEAL DIALYSIS
     Route: 033
     Dates: start: 20100801, end: 20101102
  5. PHYSIOSOL IN PLASTIC CONTAINER [Suspect]
     Route: 033
     Dates: start: 20100801, end: 20101102
  6. PHYSIOSOL IN PLASTIC CONTAINER [Suspect]
     Indication: CARDIORENAL SYNDROME
     Route: 033
     Dates: start: 20100801, end: 20101102

REACTIONS (1)
  - CARDIAC FAILURE [None]
